FAERS Safety Report 7523099-2 (Version None)
Quarter: 2011Q2

REPORT INFORMATION
  Report Type: 
  Country: None (occurrence: None)
  Receive Date: 20110603
  Receipt Date: 20110530
  Transmission Date: 20111010
  Serious: Yes (Hospitalization)
  Sender: FDA-Public Use
  Company Number: JP-ABBOTT-11P-087-0725112-00

PATIENT
  Sex: Female
  Weight: 52 kg

DRUGS (3)
  1. ISONIAZID [Concomitant]
     Indication: PROPHYLAXIS
     Dates: start: 20110428, end: 20110509
  2. LEFLUNOMIDE [Suspect]
     Indication: RHEUMATOID ARTHRITIS
     Dates: start: 20110117, end: 20110509
  3. HUMIRA [Suspect]
     Indication: RHEUMATOID ARTHRITIS
     Route: 058
     Dates: start: 20110428, end: 20110507

REACTIONS (7)
  - PYREXIA [None]
  - SENSATION OF HEAVINESS [None]
  - BONE MARROW FAILURE [None]
  - RASH [None]
  - LIVER DISORDER [None]
  - INJECTION SITE REACTION [None]
  - DIARRHOEA [None]
